FAERS Safety Report 8535069-6 (Version None)
Quarter: 2012Q3

REPORT INFORMATION
  Report Type: 
  Country: None (occurrence: None)
  Receive Date: 20120724
  Receipt Date: 20120718
  Transmission Date: 20120928
  Serious: Yes (Hospitalization)
  Sender: FDA-Public Use
  Company Number: JP-PFIZER INC-2012166791

PATIENT
  Age: 48 Year
  Sex: Male

DRUGS (5)
  1. SULFASALAZINE [Suspect]
     Dosage: UNK
     Route: 048
  2. METHOTREXATE SODIUM [Suspect]
     Indication: RHEUMATOID ARTHRITIS
     Dosage: 8 MG, UNK
     Route: 048
  3. INFLIXIMAB [Suspect]
     Indication: RHEUMATOID ARTHRITIS
     Dosage: UNK
     Route: 041
  4. ISONIAZID [Concomitant]
     Indication: TUBERCULIN TEST POSITIVE
     Dosage: UNK
  5. METHOTREXATE SODIUM [Suspect]
     Dosage: 8 MG/WEEK

REACTIONS (1)
  - PNEUMONIA [None]
